FAERS Safety Report 8867923 (Version 1)
Quarter: 2012Q4

REPORT INFORMATION
  Report Type: 
  Country: US (occurrence: US)
  Receive Date: 20121025
  Receipt Date: 20121025
  Transmission Date: 20130627
  Serious: No
  Sender: FDA-Public Use
  Company Number: US-AMGEN-USASP2012018783

PATIENT
  Sex: Female

DRUGS (10)
  1. ENBREL [Suspect]
     Indication: PRODUCT USED FOR UNKNOWN INDICATION
     Dosage: 50 mg, qwk
     Route: 058
  2. METHOTREXATE [Concomitant]
     Dosage: 2.5 mg, UNK
  3. RAMIPRIL [Concomitant]
     Dosage: 10 mg, UNK
  4. AMLODIPINE [Concomitant]
     Dosage: 5 mg, UNK
  5. HYDROCHLOROTHIAZIDE W/TRIAMTERENE [Concomitant]
     Dosage: UNK
  6. PREDNISONE [Concomitant]
     Dosage: 1 mg, UNK
  7. VICODIN ES [Concomitant]
     Dosage: UNK
  8. CLINDAMYCIN [Concomitant]
     Dosage: 300 mg, UNK
  9. PREVACID [Concomitant]
     Dosage: 15 mg, UNK
  10. IBUPROFEN [Concomitant]
     Dosage: 200 mg, UNK

REACTIONS (4)
  - Toothache [Unknown]
  - Sensitivity of teeth [Unknown]
  - Injection site reaction [Unknown]
  - Sinusitis [Unknown]
